FAERS Safety Report 5644993-3 (Version None)
Quarter: 2008Q1

REPORT INFORMATION
  Report Type: 
  Country: None (occurrence: None)
  Receive Date: 20080227
  Receipt Date: 20080212
  Transmission Date: 20080703
  Serious: Yes (Hospitalization, Other)
  Sender: FDA-Public Use
  Company Number: DSA_31431_2008

PATIENT
  Age: 78 Year
  Sex: Female

DRUGS (10)
  1. ATIVAN [Suspect]
     Indication: DRUG USE FOR UNKNOWN INDICATION
     Dosage: DF UNKNOWN
  2. COREG [Suspect]
     Indication: HYPERTENSION
     Dosage: 3.125 MG BID ORAL
     Route: 048
     Dates: start: 20070925, end: 20071211
  3. DIOVAN [Suspect]
     Indication: DRUG USE FOR UNKNOWN INDICATION
     Dosage: DF UNKNOWN
     Dates: start: 20071101, end: 20080101
  4. TYLENOL [Suspect]
     Indication: DRUG USE FOR UNKNOWN INDICATION
     Dosage: DF UNKNOWN
  5. VERAPAMIL [Concomitant]
  6. ATARAX [Suspect]
     Indication: DRUG USE FOR UNKNOWN INDICATION
  7. AITACE [Suspect]
     Indication: DRUG USE FOR UNKNOWN INDICATION
  8. INSULIN [Suspect]
     Indication: DRUG USE FOR UNKNOWN INDICATION
     Dosage: DF
  9. VITAMIN B COMPLEX CAP [Suspect]
     Indication: DRUG USE FOR UNKNOWN INDICATION
     Dosage: DF
  10. ASPIRIN [Suspect]
     Indication: DRUG USE FOR UNKNOWN INDICATION
     Dosage: DF

REACTIONS (8)
  - BLOOD GLUCOSE INCREASED [None]
  - CEREBROVASCULAR ACCIDENT [None]
  - CONVULSION [None]
  - DIZZINESS [None]
  - DRUG HYPERSENSITIVITY [None]
  - FEELING ABNORMAL [None]
  - RASH PRURITIC [None]
  - SYNCOPE [None]
